FAERS Safety Report 23275024 (Version 1)
Quarter: 2023Q4

REPORT INFORMATION
  Report Type: Spontaneous
  Country: PR (occurrence: PR)
  Receive Date: 20231208
  Receipt Date: 20231208
  Transmission Date: 20240109
  Serious: No
  Sender: FDA-Public Use
  Company Number: PR-ABBVIE-5524093

PATIENT
  Sex: Male

DRUGS (1)
  1. MAVYRET [Suspect]
     Active Substance: GLECAPREVIR\PIBRENTASVIR
     Indication: Hepatitis C
     Dosage: LAST ADMIN DATE-2023
     Route: 048
     Dates: start: 202303

REACTIONS (1)
  - Hepatitis C virus test positive [Not Recovered/Not Resolved]

NARRATIVE: CASE EVENT DATE: 20230101
